FAERS Safety Report 25192573 (Version 1)
Quarter: 2025Q2

REPORT INFORMATION
  Report Type: Spontaneous
  Country: FR (occurrence: FR)
  Receive Date: 20250414
  Receipt Date: 20250414
  Transmission Date: 20250717
  Serious: Yes (Hospitalization)
  Sender: MYLAN
  Company Number: None

PATIENT
  Sex: Female

DRUGS (4)
  1. EPIPEN [Suspect]
     Active Substance: EPINEPHRINE
     Indication: Product used for unknown indication
     Dates: start: 20250311, end: 20250311
  2. EPIPEN [Suspect]
     Active Substance: EPINEPHRINE
     Route: 030
     Dates: start: 20250311, end: 20250311
  3. EPIPEN [Suspect]
     Active Substance: EPINEPHRINE
     Route: 030
     Dates: start: 20250311, end: 20250311
  4. EPIPEN [Suspect]
     Active Substance: EPINEPHRINE
     Dates: start: 20250311, end: 20250311

REACTIONS (3)
  - Occupational exposure to product [Recovered/Resolved]
  - Peripheral ischaemia [Not Recovered/Not Resolved]
  - Tachycardia [Recovered/Resolved]

NARRATIVE: CASE EVENT DATE: 20250311
